FAERS Safety Report 7368046-1 (Version None)
Quarter: 2011Q1

REPORT INFORMATION
  Report Type: 
  Country: None (occurrence: None)
  Receive Date: 20110323
  Receipt Date: 20110315
  Transmission Date: 20110831
  Serious: Yes (Hospitalization)
  Sender: FDA-Public Use
  Company Number: US-BIOGENIDEC-2010BI021417

PATIENT
  Age: 55 Year
  Sex: Female
  Weight: 83 kg

DRUGS (3)
  1. TYSABRI [Suspect]
     Indication: MULTIPLE SCLEROSIS
     Route: 042
     Dates: start: 20090325
  2. ORAL DIABETES MEDICATION [Concomitant]
  3. INSULIN (NOS) [Concomitant]
     Indication: DIABETES MELLITUS

REACTIONS (3)
  - CARPAL TUNNEL SYNDROME [None]
  - BLOOD GLUCOSE DECREASED [None]
  - GASTRIC BYPASS [None]
